FAERS Safety Report 20701745 (Version 1)
Quarter: 2022Q2

REPORT INFORMATION
  Report Type: Spontaneous
  Country: US (occurrence: US)
  Receive Date: 20220412
  Receipt Date: 20220412
  Transmission Date: 20220721
  Serious: No
  Sender: FDA-Public Use
  Company Number: US-MYLANLABS-2022M1025517

PATIENT
  Sex: Female
  Weight: 65.77 kg

DRUGS (1)
  1. ESTRADIOL [Suspect]
     Active Substance: ESTRADIOL
     Indication: Vulvovaginal dryness
     Dosage: UNK UNK, Q2W, (TWICE A WEEK)
     Route: 067

REACTIONS (2)
  - Product use issue [Unknown]
  - Product quality issue [Unknown]
